FAERS Safety Report 9004631 (Version 2)
Quarter: 2013Q2

REPORT INFORMATION
  Report Type: Spontaneous
  Country: DE (occurrence: DE)
  Receive Date: 20130108
  Receipt Date: 20130531
  Transmission Date: 20140414
  Serious: Yes (Life-Threatening, Other)
  Sender: FDA-Public Use
  Company Number: DE-ASTRAZENECA-2013SE00040

PATIENT
  Age: 4722 Day
  Sex: Male
  Weight: 43.2 kg

DRUGS (2)
  1. SEROQUEL PROLONG [Suspect]
     Indication: ATTENTION DEFICIT/HYPERACTIVITY DISORDER
     Route: 048
     Dates: start: 20121030
  2. SEROQUEL PROLONG [Suspect]
     Indication: ATTENTION DEFICIT/HYPERACTIVITY DISORDER
     Route: 048
     Dates: end: 20121220

REACTIONS (3)
  - Ventricular tachycardia [Recovered/Resolved]
  - Sinus tachycardia [Recovered/Resolved]
  - Off label use [Unknown]
